FAERS Safety Report 5005660-2 (Version None)
Quarter: 2006Q2

REPORT INFORMATION
  Report Type: 
  Country: None (occurrence: None)
  Receive Date: 20060517
  Receipt Date: 20060517
  Transmission Date: 20061013
  Serious: Yes (Hospitalization)
  Sender: FDA-Public Use
  Company Number: None

PATIENT
  Age: 75 Year
  Sex: Male

DRUGS (11)
  1. IBUPROFEN [Suspect]
     Indication: PAIN
  2. MINOXIDIL [Concomitant]
  3. RANITIDINE [Concomitant]
  4. CA / VIT D [Concomitant]
  5. METHOCARBAMOL [Concomitant]
  6. NIFEDIPINE [Concomitant]
  7. ATENOLOL [Concomitant]
  8. FESO4 [Concomitant]
  9. LOVASTATIN [Concomitant]
  10. ISOSORBIDE [Concomitant]
  11. NITROGLYCERIN [Concomitant]

REACTIONS (2)
  - HYPERKALAEMIA [None]
  - RENAL FAILURE ACUTE [None]
